FAERS Safety Report 17343122 (Version 6)
Quarter: 2020Q3

REPORT INFORMATION
  Report Type: Spontaneous
  Country: US (occurrence: US)
  Receive Date: 20200129
  Receipt Date: 20200916
  Transmission Date: 20201102
  Serious: Yes (Other)
  Sender: FDA-Public Use
  Company Number: US-VERTEX PHARMACEUTICALS-2020-001238

PATIENT
  Sex: Male
  Weight: 38 kg

DRUGS (2)
  1. KITABIS PAK [Concomitant]
     Active Substance: TOBRAMYCIN
     Dosage: UNK
  2. TRIKAFTA [Suspect]
     Active Substance: ELEXACAFTOR\IVACAFTOR\TEZACAFTOR
     Indication: CYSTIC FIBROSIS
     Dosage: 2 TABS (100MG ELEXA/50MG TEZA/75MG IVA) AM; 1 TAB (150MG IVA) PM
     Route: 048
     Dates: start: 20200122, end: 20200205

REACTIONS (5)
  - Dyspnoea [Unknown]
  - Blood bilirubin increased [Not Recovered/Not Resolved]
  - Abdominal pain upper [Unknown]
  - Arthralgia [Unknown]
  - Hepatic cirrhosis [Not Recovered/Not Resolved]

NARRATIVE: CASE EVENT DATE: 2020
